FAERS Safety Report 15880148 (Version 1)
Quarter: 2019Q1

REPORT INFORMATION
  Report Type: Spontaneous
  Country: US (occurrence: US)
  Receive Date: 20190128
  Receipt Date: 20190128
  Transmission Date: 20190417
  Serious: Yes (Hospitalization)
  Sender: FDA-Public Use
  Company Number: None

PATIENT
  Age: 28 Year
  Sex: Female
  Weight: 66.7 kg

DRUGS (1)
  1. BENLYSTA [Suspect]
     Active Substance: BELIMUMAB
     Indication: SYSTEMIC LUPUS ERYTHEMATOSUS
     Dosage: ?          OTHER FREQUENCY:MONTHLY;?
     Route: 042
     Dates: start: 20190125, end: 20190125

REACTIONS (10)
  - Dizziness [None]
  - Flushing [None]
  - Dyspnoea [None]
  - Chest discomfort [None]
  - Abdominal pain upper [None]
  - Pain [None]
  - Musculoskeletal chest pain [None]
  - Chest pain [None]
  - Headache [None]
  - Hypotension [None]

NARRATIVE: CASE EVENT DATE: 20190125
